FAERS Safety Report 8303679-7 (Version None)
Quarter: 2012Q1

REPORT INFORMATION
  Report Type: 
  Country: None (occurrence: None)
  Receive Date: 20120326
  Receipt Date: 20110913
  Transmission Date: 20120608
  Serious: Yes (Other)
  Sender: FDA-Public Use
  Company Number: PHEH2011US04435

PATIENT

DRUGS (1)
  1. TASIGNA [Suspect]

REACTIONS (1)
  - PANCREATITIS ACUTE [None]
